FAERS Safety Report 20996458 (Version 1)
Quarter: 2022Q2

REPORT INFORMATION
  Report Type: Spontaneous
  Country: US (occurrence: US)
  Receive Date: 20220623
  Receipt Date: 20220623
  Transmission Date: 20220721
  Serious: No
  Sender: FDA-Public Use
  Company Number: US-EPICPHARMA-US-2022EPCSPO00871

PATIENT
  Sex: Female
  Weight: 140 kg

DRUGS (1)
  1. CHOLESTYRAMINE [Suspect]
     Active Substance: CHOLESTYRAMINE
     Indication: Blood cholesterol increased
     Route: 048

REACTIONS (1)
  - Hypersensitivity [Unknown]
